FAERS Safety Report 6859774-2 (Version None)
Quarter: 2010Q3

REPORT INFORMATION
  Report Type: 
  Country: None (occurrence: None)
  Receive Date: 20100720
  Receipt Date: 20100706
  Transmission Date: 20110219
  Serious: Yes (Other)
  Sender: FDA-Public Use
  Company Number: GB-RANBAXY-2010RR-35448

PATIENT
  Age: 82 Year
  Sex: Female

DRUGS (5)
  1. BISOPROLOL [Suspect]
     Dosage: 2.5 MG, QD
  2. CO-AMILOFRUSE [Suspect]
     Dosage: 1 DF, QD
  3. LISINOPRIL [Suspect]
     Dosage: 20 MG, QD
  4. LISINOPRIL [Suspect]
     Dosage: 10 MG, QD
  5. ASPIRIN [Suspect]

REACTIONS (10)
  - ABDOMINAL DISTENSION [None]
  - CHEST DISCOMFORT [None]
  - DIZZINESS [None]
  - ERUCTATION [None]
  - FALL [None]
  - HEADACHE [None]
  - HYPOTENSION [None]
  - INJURY [None]
  - SYNCOPE [None]
  - VISION BLURRED [None]
